FAERS Safety Report 14309747 (Version 11)
Quarter: 2018Q3

REPORT INFORMATION
  Report Type: Spontaneous
  Country: CA (occurrence: CA)
  Receive Date: 20171220
  Receipt Date: 20180716
  Transmission Date: 20181010
  Serious: Yes (Other)
  Sender: FDA-Public Use
  Company Number: CA-CELLTRION INC.-2017CA009797

PATIENT

DRUGS (14)
  1. FOLIC ACID. [Concomitant]
     Active Substance: FOLIC ACID
     Dosage: UNK
     Route: 065
  2. METHOTREXATE. [Concomitant]
     Active Substance: METHOTREXATE
     Dosage: 25 MG, WEEKLY
     Route: 058
  3. INFLECTRA [Suspect]
     Active Substance: INFLIXIMAB-DYYB
     Dosage: 400 MG EVERY 6 WEEKS;
     Route: 042
     Dates: start: 2018
  4. CELEBREX [Concomitant]
     Active Substance: CELECOXIB
     Indication: ARTHRITIS
     Dosage: 200 MG, DAILY
  5. INFLECTRA [Suspect]
     Active Substance: INFLIXIMAB-DYYB
     Dosage: 200 MG, CYCLIC THEN EVERY 6 WEEKS
     Route: 042
     Dates: start: 2017, end: 20170919
  6. INFLECTRA [Suspect]
     Active Substance: INFLIXIMAB-DYYB
     Dosage: 200 MG, CYCLIC THEN EVERY 6 WEEKS
     Route: 042
     Dates: start: 20180319
  7. INFLECTRA [Suspect]
     Active Substance: INFLIXIMAB-DYYB
     Dosage: 200 MG, CYCLIC  THEN EVERY 6 WEEKS
     Route: 042
     Dates: start: 20180410
  8. DOVOBET [Concomitant]
     Active Substance: BETAMETHASONE\CALCIPOTRIENE
     Dosage: UNK
  9. INFLECTRA [Suspect]
     Active Substance: INFLIXIMAB-DYYB
     Indication: PSORIATIC ARTHROPATHY
     Dosage: 200 MG, CYCLIC (EVERY 0, 2, 6 WEEKS THEN EVERY 8 WEEKS)
     Route: 042
     Dates: start: 20170220, end: 2017
  10. INFLECTRA [Suspect]
     Active Substance: INFLIXIMAB-DYYB
     Dosage: 200 MG, CYCLIC THEN EVERY 6 WEEKS
     Route: 042
     Dates: start: 2018
  11. SULFASALAZINE. [Concomitant]
     Active Substance: SULFASALAZINE
     Dosage: 1 G, BID
     Route: 048
  12. INFLECTRA [Suspect]
     Active Substance: INFLIXIMAB-DYYB
     Dosage: 200 MG, CYCLIC THEN EVERY 6 WEEKS
     Route: 042
     Dates: start: 20171114, end: 20180206
  13. INFLECTRA [Suspect]
     Active Substance: INFLIXIMAB-DYYB
     Dosage: UNKNOWN
     Route: 065
     Dates: end: 20180525
  14. NAPROXEN. [Concomitant]
     Active Substance: NAPROXEN
     Dosage: 400 MG, BID
     Route: 048

REACTIONS (6)
  - Condition aggravated [Not Recovered/Not Resolved]
  - Urticaria [Recovered/Resolved]
  - Drug prescribing error [Unknown]
  - Product use issue [Unknown]
  - Drug ineffective [Not Recovered/Not Resolved]
  - Pruritus [Recovered/Resolved]

NARRATIVE: CASE EVENT DATE: 20180206
